FAERS Safety Report 8863201 (Version 1)
Quarter: 2012Q4

REPORT INFORMATION
  Report Type: 
  Country: US (occurrence: US)
  Receive Date: 20121025
  Receipt Date: 20121025
  Transmission Date: 20130627
  Serious: No
  Sender: FDA-Public Use
  Company Number: US-VERTEX PHARMACEUTICAL INC.-2012-023412

PATIENT
  Age: 54 Year
  Sex: Female
  Weight: 86 kg

DRUGS (6)
  1. INCIVEK [Suspect]
     Indication: HEPATITIS C
     Dosage: 750 mg, tid
     Route: 048
     Dates: start: 20121007
  2. RIBAVIRIN [Suspect]
     Indication: HEPATITIS C
     Dosage: UNK
     Dates: start: 20121007
  3. PEGASYS [Suspect]
     Indication: HEPATITIS C
     Dosage: 180 ?g, weekly
     Route: 058
     Dates: start: 20121007
  4. METFORMIN [Concomitant]
  5. GLYBURIDE [Concomitant]
  6. BP MEDICATIONS [Concomitant]

REACTIONS (2)
  - Hypertension [Unknown]
  - Constipation [Recovered/Resolved]
